FAERS Safety Report 21620039 (Version 3)
Quarter: 2023Q1

REPORT INFORMATION
  Report Type: Report from Study
  Country: US (occurrence: US)
  Receive Date: 20221121
  Receipt Date: 20230214
  Transmission Date: 20230417
  Serious: No
  Sender: FDA-Public Use
  Company Number: US-ABBVIE-4171130

PATIENT
  Age: 41 Year
  Sex: Female

DRUGS (3)
  1. RINVOQ [Suspect]
     Active Substance: UPADACITINIB
     Indication: Rheumatoid arthritis
     Dosage: FORM STRENGTH: 15 MG
     Route: 048
     Dates: start: 20220728, end: 20221017
  2. RINVOQ [Suspect]
     Active Substance: UPADACITINIB
     Indication: Rheumatoid arthritis
     Dosage: FIRST ADMIN DATE:2022?FORM STRENGTH: 15 MG
     Route: 048
     Dates: end: 202212
  3. RINVOQ [Suspect]
     Active Substance: UPADACITINIB
     Indication: Rheumatoid arthritis
     Dosage: STRENGTH-15 MG
     Route: 048
     Dates: start: 202212

REACTIONS (13)
  - Dermatitis contact [Recovered/Resolved]
  - Eye swelling [Unknown]
  - Respiratory tract infection [Unknown]
  - Rheumatoid arthritis [Unknown]
  - Nasopharyngitis [Unknown]
  - Pain [Unknown]
  - Sinusitis [Unknown]
  - Nasal congestion [Unknown]
  - Chest discomfort [Not Recovered/Not Resolved]
  - COVID-19 [Unknown]
  - Walking aid user [Unknown]
  - Gait disturbance [Unknown]
  - Gait inability [Unknown]

NARRATIVE: CASE EVENT DATE: 20221001
